FAERS Safety Report 22278596 (Version 1)
Quarter: 2023Q2

REPORT INFORMATION
  Report Type: Spontaneous
  Country: DE (occurrence: None)
  Receive Date: 20230503
  Receipt Date: 20230503
  Transmission Date: 20230721
  Serious: Yes (Life-Threatening, Hospitalization, Other)
  Sender: FDA-Public Use
  Company Number: 2023A100047

PATIENT
  Age: 43 Year
  Sex: Male

DRUGS (9)
  1. DAPAGLIFLOZIN [Suspect]
     Active Substance: DAPAGLIFLOZIN
     Route: 048
  2. ENTRESTO [Concomitant]
     Active Substance: SACUBITRIL\VALSARTAN
     Dosage: 24/26MG;1-0-1
  3. SPIRONOLACTONE [Concomitant]
     Active Substance: SPIRONOLACTONE
     Dosage: 1-0-0
  4. BISOPROLOL [Concomitant]
     Active Substance: BISOPROLOL
     Dosage: 1-0-0
  5. ELIQUIS [Concomitant]
     Active Substance: APIXABAN
     Dosage: 1-0-1
  6. AJMALIN [Concomitant]
  7. AMIODARONE [Concomitant]
     Active Substance: AMIODARONE
  8. MEXITIL [Concomitant]
     Active Substance: MEXILETINE HYDROCHLORIDE
  9. MIGALASTAT [Concomitant]
     Active Substance: MIGALASTAT

REACTIONS (6)
  - Ejection fraction decreased [Unknown]
  - Ventricular tachycardia [Unknown]
  - COVID-19 [Unknown]
  - Blood creatinine increased [Unknown]
  - Hyponatraemia [Unknown]
  - Glomerular filtration rate abnormal [Unknown]
